FAERS Safety Report 20093040 (Version 1)
Quarter: 2021Q4

REPORT INFORMATION
  Report Type: Spontaneous
  Country: US (occurrence: US)
  Receive Date: 20211120
  Receipt Date: 20211120
  Transmission Date: 20220303
  Serious: Yes (Other)
  Sender: FDA-Public Use
  Company Number: US-SA-SAC20211116000488

PATIENT
  Sex: Female

DRUGS (10)
  1. AUBAGIO [Suspect]
     Active Substance: TERIFLUNOMIDE
     Indication: Multiple sclerosis
     Route: 048
     Dates: start: 2016
  2. AMPYRA [Concomitant]
     Active Substance: DALFAMPRIDINE
  3. LUTEIN [Concomitant]
     Active Substance: LUTEIN
  4. ASPIRIN [Concomitant]
     Active Substance: ASPIRIN
  5. BACLOFEN [Concomitant]
     Active Substance: BACLOFEN
     Indication: Multiple sclerosis
     Dosage: 10MG
  6. VALIUM [Concomitant]
     Active Substance: DIAZEPAM
     Dosage: 10MG
  7. CELECOXIB [Concomitant]
     Active Substance: CELECOXIB
     Dosage: 10MG
  8. IRBESARTAN [Concomitant]
     Active Substance: IRBESARTAN
  9. PRAVASTATIN SODIUM [Concomitant]
     Active Substance: PRAVASTATIN SODIUM
  10. VITAMIN D NOS [Concomitant]
     Active Substance: VITAMIN D NOS

REACTIONS (3)
  - Syncope [Unknown]
  - Fall [Unknown]
  - Patella fracture [Unknown]
